FAERS Safety Report 12672806 (Version 1)
Quarter: 2016Q3

REPORT INFORMATION
  Report Type: Spontaneous
  Country: US (occurrence: US)
  Receive Date: 20160822
  Receipt Date: 20160822
  Transmission Date: 20161109
  Serious: No
  Sender: FDA-Public Use
  Company Number: US-JNJFOC-20160805051

PATIENT
  Sex: Female
  Weight: 79.38 kg

DRUGS (2)
  1. WOMENS ROGAINE UNSCENTED [Suspect]
     Active Substance: MINOXIDIL
     Route: 061
  2. WOMENS ROGAINE UNSCENTED [Suspect]
     Active Substance: MINOXIDIL
     Indication: ALOPECIA
     Dosage: EVERY 1-2 DAYS,PEA SIZED AMOUNT IN 4 DIFFERENT AREAS
     Route: 061
     Dates: end: 20160804

REACTIONS (3)
  - Off label use [Unknown]
  - Expired product administered [Unknown]
  - Product use issue [Unknown]
